FAERS Safety Report 5639608-4 (Version None)
Quarter: 2008Q1

REPORT INFORMATION
  Report Type: 
  Country: None (occurrence: None)
  Receive Date: 20080220
  Receipt Date: 20080213
  Transmission Date: 20080703
  Serious: Yes (Hospitalization)
  Sender: FDA-Public Use
  Company Number: 2008SP000341

PATIENT
  Age: 29 Year
  Sex: Female
  Weight: 74.8435 kg

DRUGS (2)
  1. KOPENEX (LEVALBUTEROL HCL) INHALATION SOLUTION (1.25 MG/3ML) [Suspect]
     Indication: ASTHMA
     Dosage: 1.25 MG/3ML; Q4H; INHALATION
     Route: 055
     Dates: start: 20050101
  2. LYRICA [Concomitant]

REACTIONS (2)
  - LUNG INFECTION [None]
  - WEIGHT INCREASED [None]
